FAERS Safety Report 5587983-1 (Version None)
Quarter: 2008Q1

REPORT INFORMATION
  Report Type: 
  Country: None (occurrence: None)
  Receive Date: 20080111
  Receipt Date: 20080108
  Transmission Date: 20080703
  Serious: Yes (Hospitalization)
  Sender: FDA-Public Use
  Company Number: FR-WYE-G00861808

PATIENT
  Age: 81 Year
  Sex: Female

DRUGS (4)
  1. TAZOCILLINE [Suspect]
     Indication: LUNG DISORDER
     Dosage: UNKNOWN
     Route: 042
     Dates: start: 20070820, end: 20070831
  2. AMIKLIN [Concomitant]
     Indication: LUNG DISORDER
     Dosage: UNKNOWN
     Route: 042
     Dates: start: 20070820, end: 20070822
  3. TAHOR [Concomitant]
     Dosage: UNKNOWN
  4. VANCOMYCIN [Suspect]
     Indication: LUNG DISORDER
     Dosage: 2.5 G TOTAL DAILY
     Route: 042
     Dates: start: 20070820, end: 20070831

REACTIONS (2)
  - CATHETER SITE INFLAMMATION [None]
  - DEEP VEIN THROMBOSIS [None]
